FAERS Safety Report 20749839 (Version 1)
Quarter: 2022Q2

REPORT INFORMATION
  Report Type: Spontaneous
  Country: US (occurrence: None)
  Receive Date: 20220425
  Receipt Date: 20220425
  Transmission Date: 20220721
  Serious: Yes (Other)
  Sender: FDA-Public Use
  Company Number: None

PATIENT
  Sex: Male

DRUGS (1)
  1. .DELTA.9-TETRAHYDROCANNABINOL\HERBALS [Suspect]
     Active Substance: .DELTA.9-TETRAHYDROCANNABINOL\HERBALS
     Indication: Nausea
     Route: 055

REACTIONS (4)
  - Product contamination chemical [None]
  - Halo vision [None]
  - Visual impairment [None]
  - Manufacturing production issue [None]

NARRATIVE: CASE EVENT DATE: 20220425
